FAERS Safety Report 5259480-4 (Version None)
Quarter: 2007Q1

REPORT INFORMATION
  Report Type: 
  Country: None (occurrence: None)
  Receive Date: 20070305
  Receipt Date: 20070223
  Transmission Date: 20070707
  Serious: Yes (Disabling)
  Sender: FDA-Public Use
  Company Number: 236715

PATIENT
  Sex: Female

DRUGS (1)
  1. XOLAIR [Suspect]

REACTIONS (2)
  - BLINDNESS UNILATERAL [None]
  - UNEVALUABLE EVENT [None]
